FAERS Safety Report 23676614 (Version 1)
Quarter: 2024Q1

REPORT INFORMATION
  Report Type: Report from Study
  Country: US (occurrence: US)
  Receive Date: 20240327
  Receipt Date: 20240327
  Transmission Date: 20240409
  Serious: Yes (Hospitalization)
  Sender: FDA-Public Use
  Company Number: US-Merck Healthcare KGaA-2024015677

PATIENT
  Age: 63 Year
  Sex: Female

DRUGS (2)
  1. MAVENCLAD [Suspect]
     Active Substance: CLADRIBINE
     Indication: Multiple sclerosis
     Dosage: YEAR ONE MONTH ONE THERAPY
     Route: 048
     Dates: start: 20240219
  2. MAVENCLAD [Suspect]
     Active Substance: CLADRIBINE
     Dosage: YEAR ONE MONTH TWO THERAPY. THE PATIENT TOOK FOUR TABLETS (AS OF 17-MAR-2024).
     Route: 048
     Dates: start: 20240315

REACTIONS (10)
  - Atrial fibrillation [Unknown]
  - Disorientation [Unknown]
  - Dizziness [Unknown]
  - Fall [Unknown]
  - Head injury [Unknown]
  - Face injury [Unknown]
  - Loss of consciousness [Unknown]
  - Contusion [Unknown]
  - Skin abrasion [Unknown]
  - Skin laceration [Unknown]

NARRATIVE: CASE EVENT DATE: 20240311
